FAERS Safety Report 11781750 (Version 1)
Quarter: 2015Q4

REPORT INFORMATION
  Report Type: Spontaneous
  Country: PT (occurrence: PT)
  Receive Date: 20151126
  Receipt Date: 20151126
  Transmission Date: 20160305
  Serious: Yes (Life-Threatening)
  Sender: FDA-Public Use
  Company Number: PT-ELI_LILLY_AND_COMPANY-PT201511007958

PATIENT
  Age: 50 Year
  Sex: Female
  Weight: 57 kg

DRUGS (4)
  1. LEPICORTINOLO                      /00016201/ [Concomitant]
     Active Substance: PREDNISOLONE
     Indication: PREMEDICATION
     Dosage: 30 MG, QD
     Route: 048
     Dates: start: 20150701
  2. ALIMTA [Suspect]
     Active Substance: PEMETREXED DISODIUM
     Indication: LUNG ADENOCARCINOMA METASTATIC
     Dosage: 500 MG/M2, CYCLICAL
     Route: 042
     Dates: start: 20150702, end: 20150702
  3. ACIDO FOLICO                       /00024201/ [Concomitant]
     Indication: PREMEDICATION
  4. COBAMAMIDA [Concomitant]
     Indication: PREMEDICATION

REACTIONS (1)
  - Anaphylactic reaction [Recovered/Resolved]

NARRATIVE: CASE EVENT DATE: 20150702
